FAERS Safety Report 17682681 (Version 8)
Quarter: 2021Q2

REPORT INFORMATION
  Report Type: Report from Study
  Country: CA (occurrence: CA)
  Receive Date: 20200419
  Receipt Date: 20210408
  Transmission Date: 20210716
  Serious: Yes (Death, Hospitalization, Other)
  Sender: FDA-Public Use
  Company Number: PHHY2013CA145555

PATIENT
  Age: 82 Year
  Sex: Male

DRUGS (6)
  1. INSULIN [Concomitant]
     Active Substance: INSULIN NOS
     Indication: BLOOD GLUCOSE INCREASED
     Dosage: UNK
     Route: 065
  2. SANDOSTATIN LAR DEPOT [Suspect]
     Active Substance: OCTREOTIDE ACETATE
  3. QUINAPRIL. [Suspect]
     Active Substance: QUINAPRIL
     Indication: PRODUCT USED FOR UNKNOWN INDICATION
     Dosage: UNK
     Route: 065
  4. MIRTAZAPINE. [Concomitant]
     Active Substance: MIRTAZAPINE
     Indication: PRODUCT USED FOR UNKNOWN INDICATION
     Dosage: UNK (HS)
     Route: 065
     Dates: start: 2019
  5. SANDOSTATIN LAR DEPOT [Suspect]
     Active Substance: OCTREOTIDE ACETATE
  6. SANDOSTATIN LAR DEPOT [Suspect]
     Active Substance: OCTREOTIDE ACETATE
     Indication: NEUROENDOCRINE CARCINOMA
     Dosage: 30 MG, Q4W (EVERY 4 WEEKS)
     Route: 030
     Dates: start: 20131108

REACTIONS (26)
  - Body temperature decreased [Unknown]
  - Diarrhoea [Unknown]
  - Urinary tract infection [Unknown]
  - Heart rate decreased [Unknown]
  - Oedema [Unknown]
  - Blood pressure diastolic decreased [Unknown]
  - Faeces pale [Unknown]
  - Ear pain [Not Recovered/Not Resolved]
  - Blood insulin increased [Unknown]
  - Drug hypersensitivity [Unknown]
  - Second primary malignancy [Unknown]
  - Weight increased [Unknown]
  - Needle issue [Unknown]
  - Intestinal haemorrhage [Unknown]
  - Blood pressure systolic increased [Unknown]
  - Gastrointestinal disorder [Unknown]
  - Bowel movement irregularity [Unknown]
  - Diarrhoea [Recovered/Resolved]
  - Death [Fatal]
  - Basal cell carcinoma [Unknown]
  - Pain in jaw [Not Recovered/Not Resolved]
  - Blood glucose increased [Not Recovered/Not Resolved]
  - Headache [Not Recovered/Not Resolved]
  - Injection site discomfort [Unknown]
  - Hyperphagia [Unknown]
  - Flatulence [Unknown]

NARRATIVE: CASE EVENT DATE: 20131108
